FAERS Safety Report 15376806 (Version 2)
Quarter: 2018Q4

REPORT INFORMATION
  Report Type: Spontaneous
  Country: BR (occurrence: BR)
  Receive Date: 20180913
  Receipt Date: 20181102
  Transmission Date: 20190204
  Serious: Yes (Other)
  Sender: FDA-Public Use
  Company Number: BR-REGENERON PHARMACEUTICALS, INC.-2018-36955

PATIENT

DRUGS (2)
  1. EYLEA [Suspect]
     Active Substance: AFLIBERCEPT
     Dosage: 1 DF, ONCE. OS LAST DOSE PRIOR THE EVENTS
     Dates: start: 20180829, end: 20180829
  2. EYLEA [Suspect]
     Active Substance: AFLIBERCEPT
     Indication: AGE-RELATED MACULAR DEGENERATION
     Dosage: TOTAL DOSES BEFORE EVENTS: 6

REACTIONS (8)
  - Anterior chamber disorder [Unknown]
  - Hypopyon [Unknown]
  - Eye pain [Unknown]
  - Vitreous opacities [Unknown]
  - Visual acuity reduced [Unknown]
  - Swelling of eyelid [Unknown]
  - Conjunctival hyperaemia [Unknown]
  - Multiple use of single-use product [Unknown]

NARRATIVE: CASE EVENT DATE: 20180829
